FAERS Safety Report 7454045-8 (Version None)
Quarter: 2011Q2

REPORT INFORMATION
  Report Type: 
  Country: None (occurrence: None)
  Receive Date: 20110502
  Receipt Date: 20110422
  Transmission Date: 20111010
  Serious: Yes (Disabling)
  Sender: FDA-Public Use
  Company Number: JP-GENENTECH-317776

PATIENT
  Age: 85 Year
  Sex: Male

DRUGS (7)
  1. CILOSTAZOL [Concomitant]
     Indication: ANTIPLATELET THERAPY
  2. HEPARIN SODIUM [Concomitant]
     Indication: PRODUCT USED FOR UNKNOWN INDICATION
     Dosage: UNK
     Route: 041
     Dates: start: 20110208, end: 20110224
  3. RADICUT [Suspect]
     Indication: EMBOLIC STROKE
     Dosage: 60 MG, UNK
     Route: 041
     Dates: start: 20110207, end: 20110209
  4. WARFARIN POTASSIUM [Concomitant]
     Indication: PRODUCT USED FOR UNKNOWN INDICATION
     Dosage: UNK
     Route: 048
     Dates: start: 20110209
  5. GRTPA [Suspect]
     Indication: EMBOLIC STROKE
     Dosage: 35.4 ML, UNK
     Route: 042
     Dates: start: 20110207
  6. ASPIRIN [Concomitant]
     Indication: ANTIPLATELET THERAPY
     Dosage: UNK
  7. DIURETIC (UNK INGREDIENTS) [Concomitant]
     Indication: PRODUCT USED FOR UNKNOWN INDICATION
     Dosage: UNK

REACTIONS (1)
  - RENAL IMPAIRMENT [None]
